FAERS Safety Report 7832487-6 (Version None)
Quarter: 2011Q4

REPORT INFORMATION
  Report Type: 
  Country: None (occurrence: None)
  Receive Date: 20111023
  Receipt Date: 20111010
  Transmission Date: 20120403
  Serious: Yes (Hospitalization)
  Sender: FDA-Public Use
  Company Number: US-ELI_LILLY_AND_COMPANY-US201110002542

PATIENT
  Sex: Female

DRUGS (11)
  1. FORTEO [Suspect]
     Dosage: 20 UG, QD
     Route: 065
  2. LIPITOR [Concomitant]
  3. CARBIDOPA + LEVODOPA [Concomitant]
  4. FORTEO [Suspect]
     Indication: OSTEOPOROSIS
     Dosage: 20 UG, QD
     Route: 065
     Dates: start: 20100507
  5. CITRACAL + D [Concomitant]
  6. VITAMIN D [Concomitant]
  7. WARFARIN SODIUM [Concomitant]
  8. FISH OIL [Concomitant]
  9. DETROL LA [Concomitant]
     Dosage: 4 MG, UNK
  10. FOLIC ACID [Concomitant]
  11. LASIX [Concomitant]

REACTIONS (3)
  - OEDEMA PERIPHERAL [None]
  - UPPER LIMB FRACTURE [None]
  - FALL [None]
